FAERS Safety Report 17694437 (Version 3)
Quarter: 2020Q3

REPORT INFORMATION
  Report Type: Spontaneous
  Country: JP (occurrence: JP)
  Receive Date: 20200422
  Receipt Date: 20200924
  Transmission Date: 20201102
  Serious: Yes (Death)
  Sender: FDA-Public Use
  Company Number: JP-JNJFOC-20200422131

PATIENT
  Age: 58 Year
  Sex: Female
  Weight: 43 kg

DRUGS (5)
  1. XEPLION [Suspect]
     Active Substance: PALIPERIDONE PALMITATE
     Dosage: PALIPERIDONE PALMITATE: 25 MG
     Route: 030
     Dates: start: 20181113, end: 20200331
  2. XEPLION [Suspect]
     Active Substance: PALIPERIDONE PALMITATE
     Dosage: PALIPERIDONE PALMITATE: 25 MG
     Route: 030
     Dates: start: 20181016, end: 20181016
  3. SODIUM VALPROATE [Suspect]
     Active Substance: VALPROATE SODIUM
     Indication: SCHIZOPHRENIA
     Route: 048
     Dates: start: 20160527
  4. BELSOMRA [Suspect]
     Active Substance: SUVOREXANT
     Indication: SLEEP DISORDER
     Route: 048
     Dates: start: 20191224
  5. XEPLION [Suspect]
     Active Substance: PALIPERIDONE PALMITATE
     Indication: SCHIZOPHRENIA
     Dosage: PALIPERIDONE PALMITATE: 25 MG
     Route: 030
     Dates: start: 20181009, end: 20181009

REACTIONS (1)
  - Myocardial ischaemia [Fatal]
